FAERS Safety Report 8358892-X (Version None)
Quarter: 2012Q2

REPORT INFORMATION
  Report Type: 
  Country: None (occurrence: None)
  Receive Date: 20120515
  Receipt Date: 20090113
  Transmission Date: 20120825
  Serious: No
  Sender: FDA-Public Use
  Company Number: US-BIOGENIDEC-2009BI001415

PATIENT
  Sex: Female

DRUGS (2)
  1. TYSABRI [Suspect]
     Route: 042
     Dates: start: 20110408
  2. TYSABRI [Suspect]
     Indication: MULTIPLE SCLEROSIS
     Route: 042
     Dates: start: 20081117, end: 20101104

REACTIONS (14)
  - DECREASED APPETITE [None]
  - WEIGHT DECREASED [None]
  - DIPLOPIA [None]
  - TOOTH DISORDER [None]
  - DRUG INEFFECTIVE [None]
  - MUSCULAR WEAKNESS [None]
  - DYSPNOEA [None]
  - DEMENTIA [None]
  - LOSS OF CONTROL OF LEGS [None]
  - BALANCE DISORDER [None]
  - VISUAL IMPAIRMENT [None]
  - VISUAL ACUITY REDUCED [None]
  - TREMOR [None]
  - GINGIVAL INFECTION [None]
